FAERS Safety Report 5163075-0 (Version None)
Quarter: 2006Q4

REPORT INFORMATION
  Report Type: 
  Country: None (occurrence: None)
  Receive Date: 20061201
  Receipt Date: 20061123
  Transmission Date: 20070319
  Serious: Yes (Hospitalization)
  Sender: FDA-Public Use
  Company Number: JP-ABBOTT-06P-087-0351452-00

PATIENT
  Age: 37 Year
  Sex: Male

DRUGS (2)
  1. LIPIDIL 100 MG CAPSULE [Suspect]
     Indication: HYPERLIPIDAEMIA
     Route: 048
     Dates: start: 20061029
  2. ETHYL ICOSAPENTATE [Concomitant]
     Indication: DRUG USE FOR UNKNOWN INDICATION

REACTIONS (1)
  - ABDOMINAL PAIN [None]
